FAERS Safety Report 7573890-1 (Version None)
Quarter: 2011Q2

REPORT INFORMATION
  Report Type: 
  Country: None (occurrence: None)
  Receive Date: 20110627
  Receipt Date: 20110617
  Transmission Date: 20111010
  Serious: Yes (Hospitalization)
  Sender: FDA-Public Use
  Company Number: B0670931A

PATIENT
  Age: 78 Year
  Sex: Female
  Weight: 50 kg

DRUGS (18)
  1. MERISLON [Concomitant]
     Dosage: 18MG PER DAY
     Route: 048
  2. TIZANIDINE HYDROCHLORIDE [Concomitant]
     Dosage: 3MG PER DAY
     Route: 048
  3. DASEN [Concomitant]
     Dosage: 3IUAX PER DAY
     Route: 048
     Dates: start: 20100805, end: 20100812
  4. VALTREX [Suspect]
     Indication: HERPES ZOSTER
     Dosage: 3000MG PER DAY
     Route: 048
     Dates: start: 20100805, end: 20100812
  5. LYRICA [Suspect]
     Indication: TRIGEMINAL NEURALGIA
     Dosage: 150MG PER DAY
     Route: 048
     Dates: start: 20100812, end: 20100818
  6. NORVASC [Concomitant]
     Dosage: 5MG PER DAY
     Route: 048
  7. DIAZEPAM [Concomitant]
     Dosage: .81G PER DAY
     Route: 065
  8. SELBEX [Concomitant]
     Dosage: 1.5G PER DAY
     Route: 065
  9. RUEFRIEN [Concomitant]
     Dosage: 2.01G PER DAY
     Route: 048
     Dates: start: 20100805, end: 20100812
  10. CHINESE MEDICINE [Concomitant]
     Dosage: 4IUAX PER DAY
     Route: 048
  11. ASPIRIN [Concomitant]
     Dosage: .15MG PER DAY
     Route: 065
  12. DIMENHYDRINATE [Concomitant]
     Dosage: 3IUAX PER DAY
     Route: 048
  13. DEPAS [Concomitant]
     Dosage: 1MG PER DAY
     Route: 048
  14. LAC B [Concomitant]
     Dosage: 3G PER DAY
     Route: 048
  15. ADETPHOS [Concomitant]
     Dosage: 3G PER DAY
     Route: 048
  16. VOLTAREN [Concomitant]
     Indication: TRIGEMINAL NEURALGIA
     Dosage: 75MG PER DAY
     Route: 048
     Dates: start: 20100806, end: 20100812
  17. VESICARE [Concomitant]
     Dosage: 5MG PER DAY
     Route: 048
  18. VITANEURIN [Concomitant]
     Indication: TRIGEMINAL NEURALGIA
     Dosage: 100MG PER DAY
     Route: 048
     Dates: start: 20100806, end: 20100806

REACTIONS (6)
  - RENAL FAILURE ACUTE [None]
  - BLOOD ALBUMIN DECREASED [None]
  - BLOOD UREA INCREASED [None]
  - ALTERED STATE OF CONSCIOUSNESS [None]
  - C-REACTIVE PROTEIN INCREASED [None]
  - BLOOD CREATININE INCREASED [None]
